FAERS Safety Report 4991665-4 (Version None)
Quarter: 2006Q2

REPORT INFORMATION
  Report Type: 
  Country: None (occurrence: None)
  Receive Date: 20060504
  Receipt Date: 20060426
  Transmission Date: 20061013
  Serious: Yes (Hospitalization)
  Sender: FDA-Public Use
  Company Number: FR-AVENTIS-200611631FR

PATIENT
  Age: 88 Year
  Sex: Male

DRUGS (7)
  1. LASILIX [Suspect]
     Indication: ACUTE PULMONARY OEDEMA
     Route: 048
     Dates: end: 20051127
  2. LASILIX [Suspect]
     Route: 048
     Dates: start: 20051129
  3. ZESTRIL [Suspect]
     Route: 048
     Dates: end: 20051127
  4. KALEORID [Suspect]
     Route: 048
     Dates: end: 20051127
  5. ALLOPURIDOL [Concomitant]
  6. OMIX [Concomitant]
  7. CORDARONE [Concomitant]
     Route: 048

REACTIONS (9)
  - ACUTE PULMONARY OEDEMA [None]
  - BRADYCARDIA [None]
  - CARDIAC FAILURE [None]
  - GENERAL PHYSICAL HEALTH DETERIORATION [None]
  - HYPERKALAEMIA [None]
  - HYPOCHLORAEMIA [None]
  - HYPONATRAEMIA [None]
  - NORMOCHROMIC NORMOCYTIC ANAEMIA [None]
  - RENAL FAILURE ACUTE [None]
